FAERS Safety Report 9119390 (Version 1)
Quarter: 2013Q1

REPORT INFORMATION
  Report Type: Spontaneous
  Country: US (occurrence: None)
  Receive Date: 20130222
  Receipt Date: 20130222
  Transmission Date: 20140127
  Serious: Yes (Other)
  Sender: FDA-Public Use
  Company Number: None

PATIENT
  Age: 53 Year
  Sex: Male

DRUGS (1)
  1. MODAFINIL [Suspect]
     Indication: NARCOLEPSY
     Dosage: 200 MG  ONE QAM  ONE Q NOON PO
     Route: 048
     Dates: start: 20120916, end: 20121016

REACTIONS (2)
  - Drug effect decreased [None]
  - Product substitution issue [None]
